FAERS Safety Report 21565671 (Version 4)
Quarter: 2023Q2

REPORT INFORMATION
  Report Type: Report from Study
  Country: US (occurrence: US)
  Receive Date: 20221108
  Receipt Date: 20230413
  Transmission Date: 20230722
  Serious: Yes (Other)
  Sender: FDA-Public Use
  Company Number: US-002147023-NVSC2022US247678

PATIENT
  Sex: Male

DRUGS (3)
  1. ENTRESTO [Suspect]
     Active Substance: SACUBITRIL\VALSARTAN
     Indication: Product used for unknown indication
     Dosage: 1 DOSAGE FORM, BID
     Route: 065
  2. ENTRESTO [Suspect]
     Active Substance: SACUBITRIL\VALSARTAN
     Dosage: 1 DOSAGE FORM, BID
     Route: 065
  3. JARDIANCE [Suspect]
     Active Substance: EMPAGLIFLOZIN
     Indication: Product used for unknown indication
     Dosage: UNK
     Route: 065

REACTIONS (18)
  - Cardiac failure [Unknown]
  - Cardiac amyloidosis [Unknown]
  - Anal sphincter hypertonia [Unknown]
  - Depression [Unknown]
  - Hyperventilation [Unknown]
  - Weight abnormal [Unknown]
  - Proctalgia [Unknown]
  - Throat clearing [Unknown]
  - Fungal infection [Unknown]
  - Prostatitis [Unknown]
  - Pelvic pain [Unknown]
  - Muscle spasms [Unknown]
  - Stress [Unknown]
  - Anxiety [Unknown]
  - Weight increased [Unknown]
  - Fluid retention [Unknown]
  - Myalgia [Unknown]
  - Cough [Unknown]
